FAERS Safety Report 15617010 (Version 1)
Quarter: 2020Q3

REPORT INFORMATION
  Report Type: Spontaneous
  Country: GB (occurrence: GB)
  Receive Date: 20181114
  Receipt Date: 20181114
  Transmission Date: 20201105
  Serious: Yes (Death, Hospitalization)
  Sender: FDA-Public Use
  Company Number: GB-TEVA-2018-GB-974901

PATIENT
  Age: 57 Year
  Sex: Male

DRUGS (3)
  1. IBANDRONIC ACID. [Suspect]
     Active Substance: IBANDRONIC ACID
     Indication: METASTASES TO BONE
     Route: 042
     Dates: start: 20060227, end: 20060301
  2. TAXOTERE [Concomitant]
     Active Substance: DOCETAXEL
     Indication: LUNG NEOPLASM MALIGNANT
     Route: 065
     Dates: start: 20050815
  3. MORPHINE ORAL [Concomitant]
     Active Substance: MORPHINE
     Indication: PAIN
     Route: 048

REACTIONS (3)
  - Death [Fatal]
  - Sepsis [Not Recovered/Not Resolved]
  - Neuropathy peripheral [Unknown]

NARRATIVE: CASE EVENT DATE: 20060301
